FAERS Safety Report 7015152-7 (Version None)
Quarter: 2010Q3

REPORT INFORMATION
  Report Type: 
  Country: None (occurrence: None)
  Receive Date: 20100927
  Receipt Date: 20100728
  Transmission Date: 20110219
  Serious: No
  Sender: FDA-Public Use
  Company Number: US-ASTRAZENECA-2010SE35286

PATIENT
  Sex: Female
  Weight: 113.4 kg

DRUGS (3)
  1. ARIMIDEX [Suspect]
     Indication: BREAST CANCER
     Route: 048
     Dates: start: 20050101, end: 20100714
  2. ARIMIDEX [Suspect]
     Indication: OESTROGEN RECEPTOR ASSAY POSITIVE
     Route: 048
     Dates: start: 20050101, end: 20100714
  3. ZOLADEX [Concomitant]
     Indication: MENOPAUSE

REACTIONS (2)
  - DRUG DOSE OMISSION [None]
  - RESTLESSNESS [None]
